FAERS Safety Report 9042019 (Version 1)
Quarter: 2013Q1

REPORT INFORMATION
  Report Type: Report from Study
  Country: US (occurrence: US)
  Receive Date: 20130129
  Receipt Date: 20130129
  Transmission Date: 20140127
  Serious: No
  Sender: FDA-Public Use
  Company Number: US-ABBOTT-12P-163-0905015-00

PATIENT
  Age: 26 Year
  Sex: Female

DRUGS (7)
  1. HUMIRA 40 MG/0.8 ML PEN [Suspect]
     Indication: CROHN^S DISEASE
     Dates: start: 20111208
  2. PROPRANOLOL [Concomitant]
     Indication: PALPITATIONS
  3. ISONIAZID [Concomitant]
     Indication: TUBERCULIN TEST POSITIVE
  4. ISONIAZID [Concomitant]
     Indication: CHEST X-RAY NORMAL
  5. LEXAPRO [Concomitant]
     Indication: DEPRESSION
  6. CLONAZEPAM [Concomitant]
     Indication: ANXIETY
  7. IMITREX [Concomitant]
     Indication: MIGRAINE

REACTIONS (3)
  - Nasopharyngitis [Not Recovered/Not Resolved]
  - Cough [Not Recovered/Not Resolved]
  - Pyrexia [Not Recovered/Not Resolved]
